FAERS Safety Report 5390963-2 (Version None)
Quarter: 2007Q3

REPORT INFORMATION
  Report Type: 
  Country: None (occurrence: None)
  Receive Date: 20070716
  Receipt Date: 20070424
  Transmission Date: 20080115
  Serious: Yes (Hospitalization, Other)
  Sender: FDA-Public Use
  Company Number: MPS1-10684

PATIENT
  Age: 14 Year
  Sex: Male
  Weight: 27.1 kg

DRUGS (7)
  1. ALDURAZYME [Suspect]
     Indication: MUCOPOLYSACCHARIDOSIS I
     Dosage: 15.7 MG QWK IV
     Route: 042
     Dates: start: 20060720
  2. ALBUTEROL [Concomitant]
  3. EAR DROPS [Concomitant]
  4. GI MEDICATIONS [Concomitant]
  5. MIRALAX. MFR: BRAINTREE [Concomitant]
  6. ADVAIR DISKUS 100/50 [Concomitant]
  7. FLONASE. MFR: GLAXO LABORATORIES LIMITED [Concomitant]

REACTIONS (9)
  - BLOOD PRESSURE INCREASED [None]
  - C-REACTIVE PROTEIN DECREASED [None]
  - CATHETER RELATED COMPLICATION [None]
  - INFUSION RELATED REACTION [None]
  - INTERNATIONAL NORMALISED RATIO INCREASED [None]
  - PROTEIN TOTAL ABNORMAL [None]
  - PROTHROMBIN LEVEL INCREASED [None]
  - SUBCLAVIAN VEIN THROMBOSIS [None]
  - THROMBIN-ANTITHROMBIN III COMPLEX ABNORMAL [None]
